FAERS Safety Report 7526358-2 (Version None)
Quarter: 2011Q2

REPORT INFORMATION
  Report Type: 
  Country: None (occurrence: None)
  Receive Date: 20110606
  Receipt Date: 20110526
  Transmission Date: 20111010
  Serious: Yes (Hospitalization)
  Sender: FDA-Public Use
  Company Number: US-BAXTER-2011BH016254

PATIENT
  Age: 71 Year
  Sex: Male

DRUGS (3)
  1. ZYVOX [Suspect]
     Indication: PRODUCT USED FOR UNKNOWN INDICATION
     Route: 065
  2. ZYVOX [Concomitant]
     Route: 065
  3. DIANEAL [Suspect]
     Indication: PERITONEAL DIALYSIS
     Route: 033
     Dates: start: 20110501

REACTIONS (2)
  - ADVERSE DRUG REACTION [None]
  - HAEMOGLOBIN DECREASED [None]
